FAERS Safety Report 7688053-9 (Version None)
Quarter: 2011Q3

REPORT INFORMATION
  Report Type: 
  Country: None (occurrence: None)
  Receive Date: 20110816
  Receipt Date: 20110816
  Transmission Date: 20111222
  Serious: Yes (Hospitalization)
  Sender: FDA-Public Use
  Company Number: None

PATIENT
  Age: 62 Year
  Sex: Male
  Weight: 125 kg

DRUGS (1)
  1. CLINDAMYCIN [Suspect]
     Indication: SURGERY
     Dosage: 150 MG QID PO
     Route: 048
     Dates: start: 20100929, end: 20101016

REACTIONS (1)
  - RENAL FAILURE ACUTE [None]
